FAERS Safety Report 5823398-6 (Version None)
Quarter: 2008Q3

REPORT INFORMATION
  Report Type: 
  Country: None (occurrence: None)
  Receive Date: 20080725
  Receipt Date: 20060209
  Transmission Date: 20090109
  Serious: No
  Sender: FDA-Public Use
  Company Number: US-ABBOTT-06P-163-0324934-00

PATIENT
  Sex: Male

DRUGS (11)
  1. RITONAVIR [Suspect]
     Indication: HIV INFECTION
     Dates: start: 20051226, end: 20060108
  2. RITONAVIR [Suspect]
     Dates: start: 20060111
  3. APTIVUS [Suspect]
     Indication: HIV INFECTION
     Dates: start: 20051226, end: 20060108
  4. APTIVUS [Suspect]
     Dates: start: 20060111
  5. ACYCLOVIR [Concomitant]
     Indication: DRUG USE FOR UNKNOWN INDICATION
  6. BACTRIM [Concomitant]
     Indication: DRUG USE FOR UNKNOWN INDICATION
  7. HYDROCODONE BITARTRATE [Concomitant]
     Indication: DRUG USE FOR UNKNOWN INDICATION
  8. DIPHENHYDRAMINE HYDROCHLORIDE [Concomitant]
     Indication: DRUG USE FOR UNKNOWN INDICATION
  9. PRAVASTATIN SODIUM [Concomitant]
     Indication: DRUG USE FOR UNKNOWN INDICATION
  10. DOXAZOSIN METHOLATE [Concomitant]
     Indication: DRUG USE FOR UNKNOWN INDICATION
  11. ABACAVIR [Concomitant]
     Indication: DRUG USE FOR UNKNOWN INDICATION

REACTIONS (1)
  - RASH GENERALISED [None]
